FAERS Safety Report 15792997 (Version 1)
Quarter: 2019Q1

REPORT INFORMATION
  Report Type: Spontaneous
  Country: NL (occurrence: NL)
  Receive Date: 20190107
  Receipt Date: 20190107
  Transmission Date: 20190417
  Serious: Yes (Other)
  Sender: FDA-Public Use
  Company Number: NL-ACCORD-100857

PATIENT
  Age: 58 Year
  Sex: Female
  Weight: 80 kg

DRUGS (7)
  1. SOTALOL MYLAN [Concomitant]
     Active Substance: SOTALOL
  2. ACETYLSALICYLIC ACID CARDIO MYLAN [Concomitant]
  3. CRESTOR [Concomitant]
     Active Substance: ROSUVASTATIN CALCIUM
  4. FUROSEMIDE. [Concomitant]
     Active Substance: FUROSEMIDE
  5. FOSINOPRIL [Concomitant]
     Active Substance: FOSINOPRIL
  6. EPLERENON ACCORD [Suspect]
     Active Substance: EPLERENONE
     Indication: CARDIAC DISORDER
     Dosage: 25 MG, 1 X PER DAY
     Dates: start: 20180305, end: 20180310
  7. OMEPRAZOL MYLAN [Concomitant]
     Active Substance: OMEPRAZOLE
     Dosage: 20 MG

REACTIONS (4)
  - Therapeutic response unexpected [Unknown]
  - Fluid retention [Unknown]
  - Dyspnoea [Unknown]
  - Atrial fibrillation [Not Recovered/Not Resolved]

NARRATIVE: CASE EVENT DATE: 20180307
